FAERS Safety Report 25633235 (Version 1)
Quarter: 2025Q3

REPORT INFORMATION
  Report Type: Spontaneous
  Country: US (occurrence: None)
  Receive Date: 20250731
  Receipt Date: 20250731
  Transmission Date: 20251020
  Serious: Yes (Death)
  Sender: FDA-CTU
  Company Number: None

PATIENT
  Age: 52 Year
  Sex: Female
  Weight: 103.5 kg

DRUGS (2)
  1. CEFTRIAXONE SODIUM [Suspect]
     Active Substance: CEFTRIAXONE SODIUM
     Indication: Urinary tract infection
     Route: 040
     Dates: start: 20250731, end: 20250731
  2. KETOROLAC [Suspect]
     Active Substance: KETOROLAC TROMETHAMINE
     Indication: Pain
     Route: 040
     Dates: start: 20250731, end: 20250731

REACTIONS (7)
  - Malaise [None]
  - Seizure [None]
  - Respiratory disorder [None]
  - Nausea [None]
  - Anal incontinence [None]
  - Bladder disorder [None]
  - Cardio-respiratory arrest [None]

NARRATIVE: CASE EVENT DATE: 20250731
